FAERS Safety Report 20339299 (Version 1)
Quarter: 2022Q1

REPORT INFORMATION
  Report Type: Spontaneous
  Country: PT (occurrence: PT)
  Receive Date: 20220117
  Receipt Date: 20220117
  Transmission Date: 20220423
  Serious: Yes (Other)
  Sender: FDA-Public Use
  Company Number: PT-CELLTRION INC.-2022PT000118

PATIENT

DRUGS (6)
  1. RITUXIMAB [Suspect]
     Active Substance: RITUXIMAB
     Indication: Anti-neutrophil cytoplasmic antibody positive vasculitis
     Dosage: 2 DOSES OF RITUXIMAB 1 G IN 2 WEEKS
  2. RITUXIMAB [Suspect]
     Active Substance: RITUXIMAB
     Indication: Disease recurrence
     Dosage: 2 DOSES OF RITUXIMAB 1 G IN 2 WEEKS
  3. METHYLPREDNISOLONE [Suspect]
     Active Substance: METHYLPREDNISOLONE
     Indication: Anti-neutrophil cytoplasmic antibody positive vasculitis
     Dosage: 3 PULSES OF METHYLPREDNISOLONE 1 G
  4. METHYLPREDNISOLONE [Suspect]
     Active Substance: METHYLPREDNISOLONE
     Indication: Disease recurrence
  5. PREDNISOLONE [Suspect]
     Active Substance: PREDNISOLONE
     Indication: Anti-neutrophil cytoplasmic antibody positive vasculitis
     Dosage: 1 MG/KG/DAY WITH RAPOS TAPERING
  6. PREDNISOLONE [Suspect]
     Active Substance: PREDNISOLONE
     Indication: Disease recurrence

REACTIONS (2)
  - Anti-neutrophil cytoplasmic antibody positive vasculitis [Recovered/Resolved]
  - Disease recurrence [Recovered/Resolved]
